FAERS Safety Report 15570937 (Version 1)
Quarter: 2018Q4

REPORT INFORMATION
  Report Type: Spontaneous
  Country: US (occurrence: US)
  Receive Date: 20181031
  Receipt Date: 20181031
  Transmission Date: 20190205
  Serious: Yes (Hospitalization)
  Sender: FDA-Public Use
  Company Number: US-BAYER-2018-200855

PATIENT
  Age: 69 Year
  Sex: Male

DRUGS (5)
  1. DIPYRIDAMOLE. [Suspect]
     Active Substance: DIPYRIDAMOLE
     Indication: PROPHYLAXIS
     Dosage: UNK
  2. SUNITINIB [Suspect]
     Active Substance: SUNITINIB
     Dosage: 50 MG, QD
  3. ACETYLSALICYLIC ACID({=100 MG) [Suspect]
     Active Substance: ASPIRIN
     Indication: PROPHYLAXIS
     Dosage: UNK
  4. AMOXICILLIN. [Concomitant]
     Active Substance: AMOXICILLIN
     Indication: URINARY TRACT INFECTION
     Dosage: UNK
  5. CORTICOSTEROID NOS [Concomitant]
     Active Substance: CORTICOSTEROID NOS
     Indication: TUBULOINTERSTITIAL NEPHRITIS
     Dosage: UNK
     Route: 048

REACTIONS (2)
  - Haematuria [None]
  - Anaemia [None]
